FAERS Safety Report 25941883 (Version 1)
Quarter: 2025Q4

REPORT INFORMATION
  Report Type: Spontaneous
  Country: US (occurrence: None)
  Receive Date: 20251020
  Receipt Date: 20251020
  Transmission Date: 20260118
  Serious: Yes (Hospitalization)
  Sender: FDA-CTU
  Company Number: None

PATIENT
  Sex: Female

DRUGS (6)
  1. GAMMAGARD LIQUID [Suspect]
     Active Substance: HUMAN IMMUNOGLOBULIN G
     Indication: Dermatomyositis
     Dosage: 50  G GRAM(S) INTRAVENOUS? SEE IMAGE
     Route: 042
     Dates: start: 20250402
  2. SODIUM CHLORIDE [Concomitant]
     Active Substance: SODIUM CHLORIDE
  3. SOD CHLOR POS STERILE F [Concomitant]
  4. HEPARIN L/L FLUSH SYR [Concomitant]
  5. DIPHENHYDRAMINE (ALLERGY ) [Concomitant]
  6. ACETAMINOPHEN XS [Concomitant]

REACTIONS (2)
  - Device related infection [None]
  - Therapy interrupted [None]
